FAERS Safety Report 24033515 (Version 2)
Quarter: 2024Q3

REPORT INFORMATION
  Report Type: Report from Study
  Country: PY (occurrence: PY)
  Receive Date: 20240701
  Receipt Date: 20240710
  Transmission Date: 20241017
  Serious: No
  Sender: ROCHE
  Company Number: PY-ROCHE-3497958

PATIENT
  Age: 7 Year
  Sex: Male
  Weight: 14.7 kg

DRUGS (1)
  1. EVRYSDI [Suspect]
     Active Substance: RISDIPLAM
     Indication: Spinal muscular atrophy
     Dosage: STRENGTH: 60 MG/80 ML?DOSE: 4.7 MG/DL
     Route: 065
     Dates: start: 20220822

REACTIONS (4)
  - Product contamination physical [Unknown]
  - Product dose omission issue [Unknown]
  - Stomatitis [Recovered/Resolved]
  - Ulcer haemorrhage [Recovered/Resolved]

NARRATIVE: CASE EVENT DATE: 20240101
